FAERS Safety Report 6877426-X (Version None)
Quarter: 2010Q3

REPORT INFORMATION
  Report Type: 
  Country: None (occurrence: None)
  Receive Date: 20100727
  Receipt Date: 20100128
  Transmission Date: 20110219
  Serious: No
  Sender: FDA-Public Use
  Company Number: US-ABBOTT-10P-163-0623593-00

PATIENT
  Sex: Female
  Weight: 72.64 kg

DRUGS (5)
  1. SYNTHROID [Suspect]
     Indication: HYPOTHYROIDISM
     Dates: start: 20100111, end: 20100116
  2. SYNTHROID [Suspect]
     Dates: start: 20100125
  3. HYDROCHLOROTHIAZIDE [Concomitant]
     Indication: MENIERE'S DISEASE
  4. PROMETRIUM [Concomitant]
     Indication: HORMONE REPLACEMENT THERAPY
  5. ESTROGEN [Concomitant]
     Indication: HORMONE REPLACEMENT THERAPY
     Route: 062

REACTIONS (4)
  - INSOMNIA [None]
  - OEDEMA PERIPHERAL [None]
  - PALPITATIONS [None]
  - SENSATION OF HEAVINESS [None]
